FAERS Safety Report 4339051-4 (Version None)
Quarter: 2004Q2

REPORT INFORMATION
  Report Type: 
  Country: None (occurrence: None)
  Receive Date: 20040412
  Receipt Date: 20040401
  Transmission Date: 20050107
  Serious: Yes (Hospitalization, Other)
  Sender: FDA-Public Use
  Company Number: 2004205472US

PATIENT
  Age: 63 Year
  Sex: Female
  Weight: 87.1 kg

DRUGS (7)
  1. EXEMESTANE  (ESEMESTANE) BLIND BROKEN  TABLET [Suspect]
     Indication: BREAST CANCER
     Dosage: 25 MG, QD
     Dates: start: 20030510, end: 20040324
  2. ATENOLOL [Concomitant]
  3. SYNTHROID (LEVOTHYROXINE SODIUIM) [Concomitant]
  4. ROFECOXIB [Concomitant]
  5. FOSAMAX [Concomitant]
  6. MULTIVITAMINS (ERGOCALCIFEROL, RETINOL, PANTHENOL) [Concomitant]
  7. CALCIUM [Concomitant]

REACTIONS (5)
  - ATRIAL FIBRILLATION [None]
  - ATRIAL THROMBOSIS [None]
  - NASOPHARYNGITIS [None]
  - PNEUMONIA [None]
  - PULMONARY EMBOLISM [None]
